FAERS Safety Report 20095222 (Version 1)
Quarter: 2021Q4

REPORT INFORMATION
  Report Type: Report from Study
  Country: BG (occurrence: BG)
  Receive Date: 20211122
  Receipt Date: 20211122
  Transmission Date: 20220303
  Serious: Yes (Hospitalization)
  Sender: FDA-Public Use
  Company Number: BG-CELLTRION INC.-2021BG015405

PATIENT

DRUGS (4)
  1. TRASTUZUMAB [Suspect]
     Active Substance: TRASTUZUMAB
     Indication: HER2 positive breast cancer
     Dosage: 330 MILLIGRAM, EVERY 3 WEEKS
     Route: 042
     Dates: start: 20170802
  2. ANASTROZOLE [Suspect]
     Active Substance: ANASTROZOLE
     Indication: HER2 positive breast cancer
     Dosage: 1 MILLIGRAM, DAILY
     Route: 048
     Dates: start: 20180703, end: 20210101
  3. DOCETAXEL [Suspect]
     Active Substance: DOCETAXEL
     Indication: HER2 positive breast cancer
     Dosage: 120 MILLIGRAM, EVERY 3 WEEKS/ MOST RECENT DOSE OF DOCETAXEL ON 20/NOV/2017
     Route: 042
     Dates: start: 20170802
  4. PERTUZUMAB [Suspect]
     Active Substance: PERTUZUMAB
     Indication: HER2 positive breast cancer
     Dosage: 420 MILLIGRAM, EVERY 3 WEEKS
     Route: 042
     Dates: start: 20170802

REACTIONS (1)
  - Brain neoplasm [Recovered/Resolved]

NARRATIVE: CASE EVENT DATE: 20200430
